FAERS Safety Report 4389177-4 (Version None)
Quarter: 2004Q2

REPORT INFORMATION
  Report Type: 
  Country: None (occurrence: None)
  Receive Date: 20040630
  Receipt Date: 20040618
  Transmission Date: 20050107
  Serious: Yes (Death)
  Sender: FDA-Public Use
  Company Number: 200410463BCA

PATIENT
  Age: 80 Year
  Sex: Female

DRUGS (7)
  1. ASPIRIN COATED (ACETYLSALICYLIC ACID) [Suspect]
  2. COUMADIN [Suspect]
     Dosage: ORAL
     Route: 048
  3. DECADRON [Concomitant]
  4. DIGOXIN [Concomitant]
  5. INSULIN [Concomitant]
  6. PANTOLOC [Concomitant]
  7. PREDNISONE [Concomitant]

REACTIONS (3)
  - GASTROINTESTINAL HAEMORRHAGE [None]
  - HAEMOGLOBIN DECREASED [None]
  - PROTHROMBIN TIME PROLONGED [None]
